FAERS Safety Report 5202502-7 (Version None)
Quarter: 2006Q4

REPORT INFORMATION
  Report Type: 
  Country: None (occurrence: None)
  Receive Date: 20061018
  Receipt Date: 20060626
  Transmission Date: 20070319
  Serious: Yes (Other)
  Sender: FDA-Public Use
  Company Number: 2006080956

PATIENT
  Age: 73 Year
  Sex: Female

DRUGS (8)
  1. PEGAPTANIB SODIUM (PEGAPTANIB SODIUM) [Suspect]
     Indication: MACULAR DEGENERATION
     Dosage: 0.3 MG
     Dates: start: 20060508
  2. PREMARIN [Concomitant]
  3. GINKO BILOBA (GINKO BILOBA) [Concomitant]
  4. VITAMIN B12 [Concomitant]
  5. DYAZIDE [Concomitant]
  6. ARTHROTEC [Concomitant]
  7. ACETYLSALICYCYLIC ACID (ACETYLSALICYLIC ACID) [Concomitant]
  8. VYTORIN [Concomitant]

REACTIONS (3)
  - FEELING HOT [None]
  - HYPERSENSITIVITY [None]
  - RASH [None]
